FAERS Safety Report 10244890 (Version 2)
Quarter: 2014Q3

REPORT INFORMATION
  Report Type: Spontaneous
  Country: US (occurrence: US)
  Receive Date: 20140618
  Receipt Date: 20140912
  Transmission Date: 20150326
  Serious: No
  Sender: FDA-Public Use
  Company Number: US-GALDERMA-US14001513

PATIENT
  Age: 45 Year
  Sex: Female

DRUGS (3)
  1. MIRVASO [Suspect]
     Active Substance: BRIMONIDINE TARTRATE
     Indication: ROSACEA
     Dosage: 0.33%
     Route: 061
     Dates: start: 20140418, end: 20140420
  2. SHISEIDO SUNSCREEN [Concomitant]
     Indication: PROPHYLAXIS AGAINST SOLAR RADIATION
     Route: 061
     Dates: start: 2011
  3. BYDUREON [Concomitant]
     Active Substance: EXENATIDE

REACTIONS (10)
  - Emotional distress [Unknown]
  - Activities of daily living impaired [Not Recovered/Not Resolved]
  - Flushing [Not Recovered/Not Resolved]
  - Off label use [Recovered/Resolved]
  - Skin burning sensation [Not Recovered/Not Resolved]
  - Pain of skin [Recovered/Resolved]
  - Erythema [Not Recovered/Not Resolved]
  - Rebound effect [Recovered/Resolved]
  - Swelling face [Recovered/Resolved]
  - Rash papular [Not Recovered/Not Resolved]

NARRATIVE: CASE EVENT DATE: 20140418
